FAERS Safety Report 25943302 (Version 1)
Quarter: 2025Q4

REPORT INFORMATION
  Report Type: Spontaneous
  Country: US (occurrence: US)
  Receive Date: 20251021
  Receipt Date: 20251021
  Transmission Date: 20260117
  Serious: No
  Sender: ELI LILLY AND COMPANY
  Company Number: US-ELI_LILLY_AND_COMPANY-US202509026401

PATIENT
  Age: 50 Year

DRUGS (2)
  1. ZEPBOUND [Suspect]
     Active Substance: TIRZEPATIDE
     Indication: Weight control
     Dosage: 2.5 MG, WEEKLY (1/W)
     Route: 058
     Dates: start: 20250912
  2. PROZAC [Suspect]
     Active Substance: FLUOXETINE HYDROCHLORIDE
     Indication: Weight control
     Dosage: 20 MG, UNKNOWN
     Route: 065

REACTIONS (7)
  - Hyperhidrosis [Recovering/Resolving]
  - Migraine [Recovering/Resolving]
  - Vision blurred [Not Recovered/Not Resolved]
  - Off label use [Unknown]
  - Nausea [Recovering/Resolving]
  - Eructation [Recovering/Resolving]
  - Alopecia [Recovering/Resolving]

NARRATIVE: CASE EVENT DATE: 20250915
